FAERS Safety Report 7492433-4 (Version None)
Quarter: 2011Q2

REPORT INFORMATION
  Report Type: 
  Country: None (occurrence: None)
  Receive Date: 20110519
  Receipt Date: 20110505
  Transmission Date: 20111010
  Serious: Yes (Hospitalization)
  Sender: FDA-Public Use
  Company Number: ES-AMGEN-ESPSP2011023530

PATIENT
  Age: 67 Year
  Sex: Male
  Weight: 73.8 kg

DRUGS (3)
  1. AZATHIOPRINE [Concomitant]
     Dosage: UNK
     Route: 042
     Dates: start: 20100411
  2. ARANESP [Suspect]
     Indication: ANAEMIA
     Dosage: 300 A?G, QWK
     Route: 058
     Dates: start: 20100701, end: 20110113
  3. ACETAMINOPHEN [Concomitant]
     Dosage: UNK
     Route: 048
     Dates: start: 19900101

REACTIONS (2)
  - DACRYOCYSTITIS [None]
  - ECZEMA [None]
